FAERS Safety Report 25037504 (Version 3)
Quarter: 2025Q1

REPORT INFORMATION
  Report Type: Spontaneous
  Country: ES (occurrence: ES)
  Receive Date: 20250304
  Receipt Date: 20250311
  Transmission Date: 20250408
  Serious: Yes (Other)
  Sender: Kenvue
  Company Number: ES-DSJP-DS-2025-126029-ES

PATIENT

DRUGS (2)
  1. IBUPROFEN [Interacting]
     Active Substance: IBUPROFEN
     Indication: Product used for unknown indication
     Route: 065
  2. EDOXABAN TOSYLATE [Interacting]
     Active Substance: EDOXABAN TOSYLATE
     Indication: Product used for unknown indication
     Dosage: 60 MILLIGRAM, ONCE A DAY (60 MG, QD (MORE THAN 3 YEARS) )
     Route: 065

REACTIONS (6)
  - Vitreous haemorrhage [Recovered/Resolved]
  - Arthralgia [Unknown]
  - Impaired healing [Unknown]
  - Inflammation [Unknown]
  - Musculoskeletal discomfort [Not Recovered/Not Resolved]
  - Drug interaction [Unknown]

NARRATIVE: CASE EVENT DATE: 20230101
